FAERS Safety Report 5170819-0 (Version None)
Quarter: 2006Q4

REPORT INFORMATION
  Report Type: 
  Country: None (occurrence: None)
  Receive Date: 20061205
  Receipt Date: 20061205
  Transmission Date: 20070319
  Serious: Yes (Hospitalization)
  Sender: FDA-Public Use
  Company Number: None

PATIENT
  Age: 55 Year
  Sex: Male
  Weight: 89.3 kg

DRUGS (3)
  1. LISINOPRIL [Suspect]
  2. LOSARTAN POTASSIUM [Suspect]
  3. SPIRONOLACTONE [Suspect]

REACTIONS (9)
  - CHRONIC OBSTRUCTIVE PULMONARY DISEASE [None]
  - COLONIC POLYP [None]
  - GALLBLADDER DISORDER [None]
  - HAEMORRHOIDS [None]
  - HEPATIC CYST [None]
  - HEPATIC STEATOSIS [None]
  - HEPATOCELLULAR DAMAGE [None]
  - HYPERKALAEMIA [None]
  - SLEEP APNOEA SYNDROME [None]
